FAERS Safety Report 9230231 (Version 1)
Quarter: 2013Q2

REPORT INFORMATION
  Report Type: Spontaneous
  Country: US (occurrence: None)
  Receive Date: 20130411
  Receipt Date: 20130411
  Transmission Date: 20140414
  Serious: Yes (Disabling, Other)
  Sender: FDA-Public Use
  Company Number: THQ2013A02542

PATIENT
  Age: 79 Year
  Sex: Male

DRUGS (8)
  1. ACTOS [Suspect]
     Indication: DIABETES MELLITUS
     Route: 048
     Dates: start: 2009
  2. AMARYL (GLIMEPIRIDE) [Concomitant]
  3. LEVEMIR ( INSULIN DETEMIR) [Concomitant]
  4. ASPIRIN ( ACETYLSALICYLIC ACID) [Concomitant]
  5. GLUCOSAMIN ( GLUCOSAMINE SULFATE POTASSIUM CHLORIDE) [Concomitant]
  6. AZOPT ( BRINZOLAMIDE) [Concomitant]
  7. XALCOM ( TIMOLOL, MALEATE, LATANOPROST) [Concomitant]
  8. FOTIL ( PILOCARPINE HYDROCHLORIDE, TIMOLOL MALEATE) [Concomitant]

REACTIONS (2)
  - Intraocular pressure increased [None]
  - Visual acuity reduced [None]
